FAERS Safety Report 10787008 (Version 2)
Quarter: 2015Q4

REPORT INFORMATION
  Report Type: Spontaneous
  Country: US (occurrence: US)
  Receive Date: 20150211
  Receipt Date: 20151007
  Transmission Date: 20160304
  Serious: No
  Sender: FDA-Public Use
  Company Number: US-GLAXOSMITHKLINE-US2015GSK018159

PATIENT
  Sex: Female

DRUGS (1)
  1. VENTOLIN HFA [Suspect]
     Active Substance: ALBUTEROL SULFATE
     Indication: ASTHMA
     Dosage: UNK, U
     Route: 065
     Dates: start: 1985

REACTIONS (7)
  - Intentional product use issue [Unknown]
  - Overdose [Unknown]
  - Condition aggravated [Unknown]
  - Asthma [Unknown]
  - Dyspnoea [Unknown]
  - Extra dose administered [Unknown]
  - Muscle spasms [Unknown]
